FAERS Safety Report 7510425-3 (Version None)
Quarter: 2011Q2

REPORT INFORMATION
  Report Type: 
  Country: None (occurrence: None)
  Receive Date: 20110527
  Receipt Date: 20110516
  Transmission Date: 20111010
  Serious: Yes (Other)
  Sender: FDA-Public Use
  Company Number: SG-WATSON-2011-06958

PATIENT
  Age: 73 Year
  Sex: Female

DRUGS (3)
  1. ROFECOXIB [Suspect]
     Indication: PRODUCT USED FOR UNKNOWN INDICATION
     Dosage: UNK
  2. QUININE SULFATE [Suspect]
     Indication: MUSCLE SPASMS
     Dosage: 300 MG, DAILY
     Route: 048
  3. MELOXICAM [Suspect]
     Indication: PRODUCT USED FOR UNKNOWN INDICATION
     Dosage: UNK

REACTIONS (2)
  - THROMBOCYTOPENIA [None]
  - HAEMATOMA [None]
